FAERS Safety Report 5381631-1 (Version None)
Quarter: 2007Q3

REPORT INFORMATION
  Report Type: 
  Country: None (occurrence: None)
  Receive Date: 20070709
  Receipt Date: 20070704
  Transmission Date: 20080115
  Serious: Yes (Other)
  Sender: FDA-Public Use
  Company Number: PHRM2007FR01470

PATIENT
  Age: 59 Year
  Sex: Female
  Weight: 64 kg

DRUGS (9)
  1. ZOMETA [Suspect]
     Indication: METASTASES TO BONE
     Dosage: 4 MG, EVERY 3 WEEKS
     Route: 042
     Dates: start: 20061127
  2. OXYCONTIN [Concomitant]
     Dosage: 160 MG, BID
     Route: 048
  3. OXYNORM [Concomitant]
     Route: 048
  4. CELEBREX [Concomitant]
     Dosage: 2 DF PER DAY
     Route: 048
  5. LYRICA [Concomitant]
     Dosage: 100 MG PER DAY
     Route: 048
  6. XANAX [Concomitant]
     Dosage: 0.25/0.50/0.25 MG PER DAY
     Route: 048
  7. DUPHALAC /SCH/ [Concomitant]
     Route: 048
  8. TAMOXIFEN [Concomitant]
     Dosage: 20 MG, QD
     Route: 048
  9. ESOMEPRAZOLE MAGNESIUM [Concomitant]
     Dosage: 40 MG, QD
     Route: 048

REACTIONS (5)
  - BONE LESION [None]
  - OSTEONECROSIS [None]
  - PRIMARY SEQUESTRUM [None]
  - RESORPTION BONE INCREASED [None]
  - TOOTH ABSCESS [None]
